FAERS Safety Report 8082110-3 (Version None)
Quarter: 2012Q1

REPORT INFORMATION
  Report Type: 
  Country: None (occurrence: None)
  Receive Date: 20120127
  Receipt Date: 20110201
  Transmission Date: 20120608
  Serious: No
  Sender: FDA-Public Use
  Company Number: US-ABBOTT-11P-163-0702188-00

PATIENT
  Age: 42 Year
  Sex: Female

DRUGS (2)
  1. HUMIRA [Suspect]
     Indication: CROHN'S DISEASE
     Dates: start: 20090601
  2. BIRTH CONTROL PILL [Concomitant]
     Indication: CONTRACEPTION

REACTIONS (1)
  - INJECTION SITE PAIN [None]
